FAERS Safety Report 9170625 (Version 1)
Quarter: 2013Q1

REPORT INFORMATION
  Report Type: Spontaneous
  Country: US (occurrence: None)
  Receive Date: 20130315
  Receipt Date: 20130315
  Transmission Date: 20140127
  Serious: No
  Sender: FDA-Public Use
  Company Number: None

PATIENT
  Age: 56 Year
  Sex: Male

DRUGS (1)
  1. PREDNISONE UNKNOWN [Suspect]
     Indication: MIGRAINE

REACTIONS (2)
  - Chest pain [None]
  - Headache [None]
